FAERS Safety Report 14863342 (Version 1)
Quarter: 2018Q2

REPORT INFORMATION
  Report Type: Spontaneous
  Country: CA (occurrence: CA)
  Receive Date: 20180508
  Receipt Date: 20180508
  Transmission Date: 20180711
  Serious: Yes (Disabling)
  Sender: FDA-Public Use
  Company Number: CA-TEVA-2018-CA-888534

PATIENT
  Sex: Female
  Weight: 72 kg

DRUGS (3)
  1. TEVA-SUMATRIPTAN DF [Suspect]
     Active Substance: SUMATRIPTAN SUCCINATE
     Indication: MIGRAINE
     Route: 048
  2. JENCYCLA [Concomitant]
     Active Substance: NORETHINDRONE
  3. TEVA-NAPROXEN [Concomitant]
     Active Substance: NAPROXEN

REACTIONS (2)
  - Headache [Recovered/Resolved]
  - Breast pain [Recovered/Resolved]
